FAERS Safety Report 21554744 (Version 5)
Quarter: 2022Q4

REPORT INFORMATION
  Report Type: Spontaneous
  Country: US (occurrence: US)
  Receive Date: 20221104
  Receipt Date: 20221202
  Transmission Date: 20230113
  Serious: No
  Sender: FDA-Public Use
  Company Number: US-PFIZER INC-202201274569

PATIENT
  Age: 29 Year
  Sex: Male
  Weight: 79.365 kg

DRUGS (6)
  1. XELJANZ [Suspect]
     Active Substance: TOFACITINIB CITRATE
     Indication: Alopecia areata
     Dosage: 5 MG, 3X/DAY
     Route: 048
  2. XELJANZ [Suspect]
     Active Substance: TOFACITINIB CITRATE
     Dosage: 5 MG, 2X/DAY
     Route: 048
  3. XELJANZ [Suspect]
     Active Substance: TOFACITINIB CITRATE
     Dosage: 15 MG, DAILY (10MG QAM AND 5MG QPM)
     Route: 048
     Dates: start: 202203
  4. BARICITINIB [Concomitant]
     Active Substance: BARICITINIB
     Indication: Alopecia areata
     Dosage: 02 MG
  5. BARICITINIB [Concomitant]
     Active Substance: BARICITINIB
     Dosage: 04 MG
  6. MINOXIDIL [Concomitant]
     Active Substance: MINOXIDIL
     Indication: Alopecia areata
     Dosage: 1/2 TAB DAILY
     Route: 048
     Dates: start: 202203

REACTIONS (3)
  - Off label use [Unknown]
  - Drug ineffective for unapproved indication [Unknown]
  - Drug effective for unapproved indication [Unknown]
